FAERS Safety Report 6012643-2 (Version None)
Quarter: 2008Q4

REPORT INFORMATION
  Report Type: 
  Country: None (occurrence: None)
  Receive Date: 20081218
  Receipt Date: 20081205
  Transmission Date: 20090506
  Serious: Yes (Other)
  Sender: FDA-Public Use
  Company Number: NL-GENENTECH-272924

PATIENT
  Sex: Male

DRUGS (7)
  1. RITUXIMAB [Suspect]
     Indication: B-CELL LYMPHOMA
     Dosage: 25 MG, QD
     Route: 037
     Dates: start: 20081119, end: 20081127
  2. RITUXIMAB [Suspect]
     Dosage: 375 MG/M2, UNK
     Route: 042
  3. DEXAMETHASONE TAB [Suspect]
     Indication: B-CELL LYMPHOMA
     Dosage: 20 MG, QD
     Route: 042
     Dates: start: 20081120
  4. CISPLATIN [Suspect]
     Indication: B-CELL LYMPHOMA
     Dosage: 170 MG, QD
     Route: 042
     Dates: start: 20081120
  5. CYTARABINE [Suspect]
     Indication: B-CELL LYMPHOMA
     Dosage: 6800 MG, QD
     Route: 042
     Dates: start: 20081121
  6. METHOTREXATE [Suspect]
     Indication: B-CELL LYMPHOMA
     Dosage: 3000 MG/M2, QD
     Route: 042
  7. VALACYCLOVIR [Concomitant]
     Indication: DRUG USE FOR UNKNOWN INDICATION
     Route: 048

REACTIONS (1)
  - MENINGISM [None]
